FAERS Safety Report 8120695-9 (Version None)
Quarter: 2012Q1

REPORT INFORMATION
  Report Type: 
  Country: None (occurrence: None)
  Receive Date: 20120207
  Receipt Date: 20111121
  Transmission Date: 20120608
  Serious: Yes (Disabling, Other)
  Sender: FDA-Public Use
  Company Number: GB-ROCHE-1005074

PATIENT
  Sex: Female
  Weight: 95.113 kg

DRUGS (7)
  1. LORATADINE [Concomitant]
  2. FLUTICASONE PROPIONATE/SALMETEROL [Concomitant]
  3. XOLAIR [Suspect]
     Indication: ASTHMA
     Route: 058
     Dates: start: 20100519, end: 20101005
  4. ALBUTEROL SULFATE AUTOHALER [Concomitant]
  5. FUROSEMIDE [Concomitant]
     Dates: start: 20110501
  6. PREDNISOLONE [Concomitant]
  7. SPIRIVA [Concomitant]
     Dates: start: 20060101

REACTIONS (2)
  - PULMONARY HYPERTENSION [None]
  - MENTAL DISORDER [None]
